FAERS Safety Report 25906855 (Version 1)
Quarter: 2025Q4

REPORT INFORMATION
  Report Type: Spontaneous
  Country: EU (occurrence: EU)
  Receive Date: 20251010
  Receipt Date: 20251010
  Transmission Date: 20260118
  Serious: Yes (Death, Other)
  Sender: MYLAN
  Company Number: EU-MYLANLABS-2025M1085499

PATIENT
  Age: 62 Year
  Sex: Male

DRUGS (36)
  1. LEUCOVORIN [Suspect]
     Active Substance: LEUCOVORIN\LEUCOVORIN CALCIUM
     Indication: Colorectal cancer metastatic
     Dosage: UNK, ADMINISTERED AS A PART OF FOLFOX AND FOLFIRI REGIMEN
  2. LEUCOVORIN [Suspect]
     Active Substance: LEUCOVORIN\LEUCOVORIN CALCIUM
     Dosage: UNK, ADMINISTERED AS A PART OF FOLFOX AND FOLFIRI REGIMEN
     Route: 065
  3. LEUCOVORIN [Suspect]
     Active Substance: LEUCOVORIN\LEUCOVORIN CALCIUM
     Dosage: UNK, ADMINISTERED AS A PART OF FOLFOX AND FOLFIRI REGIMEN
     Route: 065
  4. LEUCOVORIN [Suspect]
     Active Substance: LEUCOVORIN\LEUCOVORIN CALCIUM
     Dosage: UNK, ADMINISTERED AS A PART OF FOLFOX AND FOLFIRI REGIMEN
  5. FLUOROURACIL [Suspect]
     Active Substance: FLUOROURACIL
     Indication: Colorectal cancer metastatic
     Dosage: UNK, ADMINISTERED AS A PART OF FOLFOX AND FOLFIRI REGIMEN
  6. FLUOROURACIL [Suspect]
     Active Substance: FLUOROURACIL
     Dosage: UNK, ADMINISTERED AS A PART OF FOLFOX AND FOLFIRI REGIMEN
     Route: 065
  7. FLUOROURACIL [Suspect]
     Active Substance: FLUOROURACIL
     Dosage: UNK, ADMINISTERED AS A PART OF FOLFOX AND FOLFIRI REGIMEN
     Route: 065
  8. FLUOROURACIL [Suspect]
     Active Substance: FLUOROURACIL
     Dosage: UNK, ADMINISTERED AS A PART OF FOLFOX AND FOLFIRI REGIMEN
  9. OXALIPLATIN [Suspect]
     Active Substance: OXALIPLATIN
     Indication: Colorectal cancer metastatic
     Dosage: UNK, ADMINISTERED AS A PART OF FOLFOX REGIMEN
  10. OXALIPLATIN [Suspect]
     Active Substance: OXALIPLATIN
     Dosage: UNK, ADMINISTERED AS A PART OF FOLFOX REGIMEN
     Route: 065
  11. OXALIPLATIN [Suspect]
     Active Substance: OXALIPLATIN
     Dosage: UNK, ADMINISTERED AS A PART OF FOLFOX REGIMEN
     Route: 065
  12. OXALIPLATIN [Suspect]
     Active Substance: OXALIPLATIN
     Dosage: UNK, ADMINISTERED AS A PART OF FOLFOX REGIMEN
  13. IRINOTECAN [Suspect]
     Active Substance: IRINOTECAN
     Indication: Colorectal cancer metastatic
     Dosage: UNK, ADMINISTERED AS A PART OF FOLFIRI REGIMEN
  14. IRINOTECAN [Suspect]
     Active Substance: IRINOTECAN
     Dosage: UNK, ADMINISTERED AS A PART OF FOLFIRI REGIMEN
     Route: 065
  15. IRINOTECAN [Suspect]
     Active Substance: IRINOTECAN
     Dosage: UNK, ADMINISTERED AS A PART OF FOLFIRI REGIMEN
     Route: 065
  16. IRINOTECAN [Suspect]
     Active Substance: IRINOTECAN
     Dosage: UNK, ADMINISTERED AS A PART OF FOLFIRI REGIMEN
  17. PANITUMUMAB [Suspect]
     Active Substance: PANITUMUMAB
     Indication: Colorectal cancer metastatic
     Dosage: UNK
  18. PANITUMUMAB [Suspect]
     Active Substance: PANITUMUMAB
     Dosage: UNK
     Route: 065
  19. PANITUMUMAB [Suspect]
     Active Substance: PANITUMUMAB
     Dosage: UNK
     Route: 065
  20. PANITUMUMAB [Suspect]
     Active Substance: PANITUMUMAB
     Dosage: UNK
  21. AFLIBERCEPT [Suspect]
     Active Substance: AFLIBERCEPT
     Indication: Colorectal cancer metastatic
     Dosage: UNK
  22. AFLIBERCEPT [Suspect]
     Active Substance: AFLIBERCEPT
     Dosage: UNK
     Route: 065
  23. AFLIBERCEPT [Suspect]
     Active Substance: AFLIBERCEPT
     Dosage: UNK
     Route: 065
  24. AFLIBERCEPT [Suspect]
     Active Substance: AFLIBERCEPT
     Dosage: UNK
  25. TIPIRACIL HYDROCHLORIDE\TRIFLURIDINE [Suspect]
     Active Substance: TIPIRACIL HYDROCHLORIDE\TRIFLURIDINE
     Indication: Colorectal cancer metastatic
     Dosage: UNK
  26. TIPIRACIL HYDROCHLORIDE\TRIFLURIDINE [Suspect]
     Active Substance: TIPIRACIL HYDROCHLORIDE\TRIFLURIDINE
     Dosage: UNK
     Route: 065
  27. TIPIRACIL HYDROCHLORIDE\TRIFLURIDINE [Suspect]
     Active Substance: TIPIRACIL HYDROCHLORIDE\TRIFLURIDINE
     Dosage: UNK
     Route: 065
  28. TIPIRACIL HYDROCHLORIDE\TRIFLURIDINE [Suspect]
     Active Substance: TIPIRACIL HYDROCHLORIDE\TRIFLURIDINE
     Dosage: UNK
  29. BEVACIZUMAB [Suspect]
     Active Substance: BEVACIZUMAB
     Indication: Colorectal cancer metastatic
     Dosage: UNK
  30. BEVACIZUMAB [Suspect]
     Active Substance: BEVACIZUMAB
     Dosage: UNK
     Route: 065
  31. BEVACIZUMAB [Suspect]
     Active Substance: BEVACIZUMAB
     Dosage: UNK
     Route: 065
  32. BEVACIZUMAB [Suspect]
     Active Substance: BEVACIZUMAB
     Dosage: UNK
  33. REGORAFENIB [Suspect]
     Active Substance: REGORAFENIB
     Indication: Colorectal cancer metastatic
     Dosage: UNK
  34. REGORAFENIB [Suspect]
     Active Substance: REGORAFENIB
     Dosage: UNK
     Route: 065
  35. REGORAFENIB [Suspect]
     Active Substance: REGORAFENIB
     Dosage: UNK
     Route: 065
  36. REGORAFENIB [Suspect]
     Active Substance: REGORAFENIB
     Dosage: UNK

REACTIONS (6)
  - Drug ineffective [Fatal]
  - Disease progression [Fatal]
  - Neuropathy peripheral [Unknown]
  - Rash [Unknown]
  - Diarrhoea [Unknown]
  - Weight decreased [Unknown]
